FAERS Safety Report 9525243 (Version 1)
Quarter: 2013Q1

REPORT INFORMATION
  Report Type: Spontaneous
  Country: US (occurrence: None)
  Receive Date: 20130314
  Receipt Date: 20130314
  Transmission Date: 20140127
  Serious: No
  Sender: FDA-Public Use
  Company Number: 1208USA008870

PATIENT
  Age: 56 Year
  Sex: Male

DRUGS (4)
  1. REBETOL (RIBAVIRIN) [Suspect]
     Indication: HEPATITIS C
     Route: 048
     Dates: start: 20040102, end: 20041204
  2. VICTRELIS [Suspect]
     Indication: HEPATITIS C
     Route: 048
     Dates: start: 20120721
  3. PEGASYS [Suspect]
     Indication: HEPATITIS C
     Dates: start: 20120623
  4. INTERFERON ALFA-2B [Suspect]

REACTIONS (19)
  - Hepatitis C [None]
  - Pruritus [None]
  - Cough [None]
  - Respiratory disorder [None]
  - Oropharyngeal pain [None]
  - Insomnia [None]
  - Epistaxis [None]
  - Anaemia [None]
  - Decreased appetite [None]
  - Musculoskeletal disorder [None]
  - Metabolic disorder [None]
  - Anaemia [None]
  - Pruritus [None]
  - Rash [None]
  - Mouth ulceration [None]
  - Oral pain [None]
  - Tongue disorder [None]
  - Gastrointestinal disorder [None]
  - Glossodynia [None]
